FAERS Safety Report 8491250-6 (Version None)
Quarter: 2012Q3

REPORT INFORMATION
  Report Type: 
  Country: None (occurrence: None)
  Receive Date: 20120706
  Receipt Date: 20120628
  Transmission Date: 20120928
  Serious: Yes (Other)
  Sender: FDA-Public Use
  Company Number: PHHY2012CA052193

PATIENT
  Sex: Female

DRUGS (18)
  1. VITAMIN D [Concomitant]
  2. ANGIOTENSIN II [Concomitant]
  3. ZOLEDRONOC ACID [Suspect]
     Indication: OSTEOPOROSIS
     Route: 042
     Dates: start: 20090605
  4. FLOVENT [Concomitant]
     Dosage: 250 MG, UNK
  5. ATACAND [Concomitant]
     Dosage: 16 MG, DAILY
  6. DIURETICS [Concomitant]
  7. PLAVIX [Concomitant]
     Indication: ANXIETY
     Dosage: 15 MG,DAILY
  8. EFFEXOR [Concomitant]
  9. LIPITOR [Concomitant]
     Dosage: 10 MG, DAILY
  10. DOXEPIN [Concomitant]
     Dosage: 10 MG, UNK
  11. CHLOROTHIAZIDE [Concomitant]
     Dosage: 25 MG, HALF A TABLET, DAILY
  12. ATIVAN [Concomitant]
     Dosage: 0.5 MG, UNK
  13. ZOLEDRONOC ACID [Suspect]
     Route: 042
     Dates: start: 20100611
  14. LEVOTHYROXINE SODIUM [Concomitant]
     Dosage: 0.075 MG, UNK
  15. ACETAMINOPHEN [Concomitant]
  16. CALCIUM [Concomitant]
  17. ZOLEDRONOC ACID [Suspect]
     Route: 042
     Dates: start: 20110616
  18. VENTOLIN [Concomitant]

REACTIONS (3)
  - DEHYDRATION [None]
  - GLOMERULAR FILTRATION RATE DECREASED [None]
  - BLOOD THYROID STIMULATING HORMONE DECREASED [None]
